FAERS Safety Report 19733341 (Version 1)
Quarter: 2021Q3

REPORT INFORMATION
  Report Type: Spontaneous
  Country: GB (occurrence: GB)
  Receive Date: 20210823
  Receipt Date: 20210823
  Transmission Date: 20211014
  Serious: Yes (Other)
  Sender: FDA-Public Use
  Company Number: GB-SUN PHARMACEUTICAL INDUSTRIES LTD-2021RR-308728

PATIENT
  Age: 19 Year
  Sex: Female
  Weight: 53 kg

DRUGS (1)
  1. SERTRALINE [Suspect]
     Active Substance: SERTRALINE HYDROCHLORIDE
     Indication: DEPRESSION
     Dosage: 25MG
     Route: 048
     Dates: start: 20210620, end: 20210620

REACTIONS (18)
  - Aggression [Recovered/Resolved]
  - Fatigue [Recovered/Resolved]
  - Dyspnoea [Recovered/Resolved]
  - Tachycardia [Recovered/Resolved]
  - Arrhythmia [Recovered/Resolved]
  - Muscle spasms [Recovered/Resolved]
  - Agitation [Recovered/Resolved]
  - Euphoric mood [Recovered/Resolved]
  - Cold sweat [Recovered/Resolved]
  - Adverse drug reaction [Recovered/Resolved]
  - Dysphemia [Recovered/Resolved with Sequelae]
  - Hyperhidrosis [Recovered/Resolved]
  - Adverse drug reaction [Recovered/Resolved with Sequelae]
  - Dysarthria [Recovered/Resolved with Sequelae]
  - Adverse drug reaction [Recovered/Resolved]
  - Pyrexia [Recovered/Resolved]
  - Muscular weakness [Recovered/Resolved]
  - Mydriasis [Recovered/Resolved]

NARRATIVE: CASE EVENT DATE: 20210620
